FAERS Safety Report 14155854 (Version 1)
Quarter: 2017Q4

REPORT INFORMATION
  Report Type: Spontaneous
  Country: US (occurrence: US)
  Receive Date: 20171103
  Receipt Date: 20171103
  Transmission Date: 20180321
  Serious: No
  Sender: FDA-Public Use
  Company Number: US-CHARTWELL PHARMA-2033125

PATIENT
  Age: 47 Year
  Sex: Male

DRUGS (1)
  1. DOXYCYCLINE HYCLATE. [Suspect]
     Active Substance: DOXYCYCLINE HYCLATE
     Indication: ROCKY MOUNTAIN SPOTTED FEVER

REACTIONS (6)
  - Migraine [Unknown]
  - Depression [Unknown]
  - Abdominal pain upper [Unknown]
  - Rash [Unknown]
  - Abdominal pain [Unknown]
  - Anxiety [Unknown]
